FAERS Safety Report 7237969-6 (Version None)
Quarter: 2011Q1

REPORT INFORMATION
  Report Type: 
  Country: None (occurrence: None)
  Receive Date: 20110121
  Receipt Date: 20110118
  Transmission Date: 20110831
  Serious: Yes (Life-Threatening, Hospitalization, Other)
  Sender: FDA-Public Use
  Company Number: GXKR2010DE14180

PATIENT
  Age: 70 Year
  Sex: Male
  Weight: 89 kg

DRUGS (5)
  1. FURORESE [Suspect]
     Dosage: 10 MG, ONCE/SINGLE
     Dates: start: 20101108, end: 20101108
  2. VESDIL [Suspect]
     Dosage: 5 MG, BID
     Route: 048
     Dates: start: 20101103, end: 20101106
  3. RAMIPRIL 1A PHARMA [Suspect]
     Dosage: 5 MG, BID
     Route: 048
     Dates: start: 20100701, end: 20101102
  4. FURORESE [Suspect]
     Indication: CARDIAC FAILURE
     Dosage: 40-80 MG DAILY
     Dates: start: 20101104, end: 20101107
  5. VESDIL [Suspect]
     Dosage: 1.25 MG, BID
     Route: 048
     Dates: start: 20101108

REACTIONS (6)
  - BLOOD CREATININE INCREASED [None]
  - WEIGHT INCREASED [None]
  - OEDEMA PERIPHERAL [None]
  - HYPOTENSION [None]
  - RENAL FAILURE ACUTE [None]
  - DYSPNOEA [None]
